FAERS Safety Report 21390365 (Version 8)
Quarter: 2022Q4

REPORT INFORMATION
  Report Type: Report from Study
  Country: ES (occurrence: None)
  Receive Date: 20220929
  Receipt Date: 20221221
  Transmission Date: 20230112
  Serious: Yes (Hospitalization)
  Sender: FDA-Public Use
  Company Number: ES-Eisai Medical Research-EC-2022-123139

PATIENT
  Age: 72 Year
  Sex: Male
  Weight: 91 kg

DRUGS (9)
  1. LENVATINIB [Suspect]
     Active Substance: LENVATINIB
     Indication: Hepatocellular carcinoma
     Dosage: STARTING DOSE AT 12 MG, FLUCTUATED DOSAGE
     Route: 048
     Dates: start: 20211203, end: 20220902
  2. PEMBROLIZUMAB [Suspect]
     Active Substance: PEMBROLIZUMAB
     Indication: Hepatocellular carcinoma
     Route: 041
     Dates: start: 20211203, end: 20220831
  3. PEMBROLIZUMAB [Suspect]
     Active Substance: PEMBROLIZUMAB
     Route: 041
     Dates: start: 20221019
  4. BELZUTIFAN [Suspect]
     Active Substance: BELZUTIFAN
     Indication: Hepatocellular carcinoma
     Route: 048
     Dates: start: 20211203, end: 20220902
  5. ENALAPRIL [Concomitant]
     Active Substance: ENALAPRIL
     Dates: start: 20180426
  6. OMEPRAZOLE [Concomitant]
     Active Substance: OMEPRAZOLE
     Dates: start: 202111
  7. MIRABEGRON [Concomitant]
     Active Substance: MIRABEGRON
     Dates: start: 202111
  8. AMLODIPINE [Concomitant]
     Active Substance: AMLODIPINE BESYLATE
     Dates: start: 20211203
  9. LEVOTHYROXINE SODIUM [Concomitant]
     Active Substance: LEVOTHYROXINE SODIUM
     Dates: start: 20220427

REACTIONS (1)
  - Spinal cord ischaemia [Recovered/Resolved]

NARRATIVE: CASE EVENT DATE: 20220902
